FAERS Safety Report 15148722 (Version 2)
Quarter: 2018Q3

REPORT INFORMATION
  Report Type: Spontaneous
  Country: DE (occurrence: DE)
  Receive Date: 20180716
  Receipt Date: 20180913
  Transmission Date: 20181010
  Serious: Yes (Hospitalization, Other)
  Sender: FDA-Public Use
  Company Number: DE-MYLANLABS-2018M1050473

PATIENT
  Sex: Male
  Weight: 1.83 kg

DRUGS (4)
  1. NEPRESOL                           /00007602/ [Suspect]
     Active Substance: HYDRALAZINE HYDROCHLORIDE
     Indication: HELLP SYNDROME
     Dosage: 50 [MG/D ]
     Route: 063
  2. METHYLDOPA. [Suspect]
     Active Substance: METHYLDOPA
     Indication: HELLP SYNDROME
     Dosage: 1500 [MG/D ]
     Route: 063
  3. METOPROLOL. [Suspect]
     Active Substance: METOPROLOL
     Indication: HELLP SYNDROME
     Dosage: 95 [MG/D ]
     Route: 063
  4. ADALAT [Suspect]
     Active Substance: NIFEDIPINE
     Indication: HELLP SYNDROME
     Dosage: 40 [MG/D ]
     Route: 063

REACTIONS (3)
  - Infantile apnoea [Recovered/Resolved]
  - Bradycardia neonatal [Recovered/Resolved]
  - Exposure via breast milk [Unknown]
